FAERS Safety Report 5652026-8 (Version None)
Quarter: 2008Q1

REPORT INFORMATION
  Report Type: 
  Country: None (occurrence: None)
  Receive Date: 20080131
  Receipt Date: 20071106
  Transmission Date: 20080703
  Serious: No
  Sender: FDA-Public Use
  Company Number: US200711001691

PATIENT
  Age: 55 Year
  Sex: Female
  Weight: 100.2 kg

DRUGS (8)
  1. BYETTA [Suspect]
     Indication: TYPE 2 DIABETES MELLITUS
     Dosage: 5 UG, 2/D, SUBCUTANEOUS
     Route: 058
     Dates: start: 20071015
  2. EXENATIDE 5MCG PEN, DISPOSABLE DEVICE (EXENATIDE PEN (5MCG)) PEN,DISPO [Concomitant]
  3. METFORMIN HCL [Concomitant]
  4. AVANDAMET [Concomitant]
  5. DRUG USED IN DIABETES [Concomitant]
  6. DILTIAZEM [Concomitant]
  7. LISINOPRIL [Concomitant]
  8. DIURETICS [Concomitant]

REACTIONS (5)
  - BLOOD PRESSURE INCREASED [None]
  - DECREASED APPETITE [None]
  - EARLY SATIETY [None]
  - JOINT SPRAIN [None]
  - WEIGHT DECREASED [None]
